FAERS Safety Report 7583034-8 (Version None)
Quarter: 2011Q2

REPORT INFORMATION
  Report Type: 
  Country: None (occurrence: None)
  Receive Date: 20110630
  Receipt Date: 20110627
  Transmission Date: 20111010
  Serious: Yes (Hospitalization)
  Sender: FDA-Public Use
  Company Number: IT-BRISTOL-MYERS SQUIBB COMPANY-15859184

PATIENT
  Age: 58 Year
  Sex: Male

DRUGS (10)
  1. PLAVIX [Suspect]
     Dosage: ORAL FILM COATED TABS,INTER ON 21JUN11
     Route: 048
     Dates: start: 20060621
  2. ZANTAC [Concomitant]
     Dosage: FILM COATED TABS
  3. COUMADIN [Suspect]
     Dosage: INTER ON 21JUN11
     Route: 048
     Dates: start: 20110522
  4. ENALAPRIL MALEATE [Concomitant]
     Dosage: TABS
  5. CARDICOR [Concomitant]
     Dosage: TABS
  6. ATORVASTATIN CALCIUM [Concomitant]
     Dosage: FILM COATED TABS
  7. ASPIRIN [Suspect]
     Indication: HYPERTENSIVE HEART DISEASE
     Dosage: TABS,INTER ON 21JUN11
     Route: 048
     Dates: start: 20060621
  8. PROCORALAN [Concomitant]
     Dosage: FILM COATED TABS
  9. TICLID [Suspect]
     Dosage: COATED ORAL TABS,THERAPY DURATION 5 YEARS
     Route: 048
     Dates: start: 20060621
  10. LASIX [Concomitant]
     Dosage: TABS

REACTIONS (2)
  - MELAENA [None]
  - DUODENAL ULCER [None]
